FAERS Safety Report 4786657-4 (Version None)
Quarter: 2005Q4

REPORT INFORMATION
  Report Type: 
  Country: None (occurrence: None)
  Receive Date: 20051003
  Receipt Date: 20051003
  Transmission Date: 20060501
  Serious: Yes (Death, Life-Threatening)
  Sender: FDA-Public Use
  Company Number: None

PATIENT
  Age: 79 Year
  Sex: Male
  Weight: 61.2356 kg

DRUGS (16)
  1. DURAGESIC-100 [Suspect]
     Indication: PAIN
     Dosage: 75 MCG/HR
     Dates: start: 20040810, end: 20040812
  2. DURAGESIC-100 [Suspect]
     Dosage: 25 MCG/HR
     Dates: start: 20040812, end: 20040812
  3. HYDROCODONE BITARTRATE + ACETAMINOPHEN [Concomitant]
  4. PLARETASE (PANCREATIC ENZYMES) [Concomitant]
  5. LEXAPRO [Concomitant]
  6. TRAZODONE [Concomitant]
  7. DIGITEX [Concomitant]
  8. DITROPAN XL [Concomitant]
  9. SPIRONOLACTONE [Concomitant]
  10. ACTOS [Concomitant]
  11. METFORMIN [Concomitant]
  12. LOPERAMIDE [Concomitant]
  13. PREVACID [Concomitant]
  14. FAMOTIDINE [Concomitant]
  15. MEGESTROL [Concomitant]
  16. HUMALOG [Concomitant]

REACTIONS (18)
  - ABDOMINAL PAIN UPPER [None]
  - BLOOD PRESSURE DECREASED [None]
  - CARDIAC FAILURE CONGESTIVE [None]
  - DEPRESSED LEVEL OF CONSCIOUSNESS [None]
  - DIABETES MELLITUS [None]
  - DYSARTHRIA [None]
  - DYSPHAGIA [None]
  - HYPOVENTILATION [None]
  - LETHARGY [None]
  - LOSS OF CONSCIOUSNESS [None]
  - LUNG NEOPLASM MALIGNANT [None]
  - MOANING [None]
  - ORAL INTAKE REDUCED [None]
  - OXYGEN SATURATION DECREASED [None]
  - RESPIRATION ABNORMAL [None]
  - RESPIRATORY RATE INCREASED [None]
  - SEDATION [None]
  - SOMNOLENCE [None]
